FAERS Safety Report 21635074 (Version 1)
Quarter: 2022Q4

REPORT INFORMATION
  Report Type: Report from Study
  Country: US (occurrence: US)
  Receive Date: 20221123
  Receipt Date: 20221123
  Transmission Date: 20230113
  Serious: No
  Sender: FDA-Public Use
  Company Number: US-ABBVIE-22K-163-4308074-00

PATIENT
  Sex: Female

DRUGS (2)
  1. IMBRUVICA [Suspect]
     Active Substance: IBRUTINIB
     Indication: Product used for unknown indication
     Route: 048
  2. IMBRUVICA [Suspect]
     Active Substance: IBRUTINIB
     Indication: Product used for unknown indication
     Route: 048

REACTIONS (12)
  - Dry mouth [Recovering/Resolving]
  - Rheumatic disorder [Recovering/Resolving]
  - Immunoglobulins abnormal [Unknown]
  - Fatigue [Recovering/Resolving]
  - Diarrhoea [Recovering/Resolving]
  - Constipation [Recovering/Resolving]
  - Arthralgia [Unknown]
  - Blood iron decreased [Unknown]
  - Swelling [Not Recovered/Not Resolved]
  - Headache [Recovering/Resolving]
  - Myalgia [Unknown]
  - Dry eye [Unknown]
